FAERS Safety Report 5599600-5 (Version None)
Quarter: 2008Q1

REPORT INFORMATION
  Report Type: 
  Country: None (occurrence: None)
  Receive Date: 20080123
  Receipt Date: 20071210
  Transmission Date: 20080703
  Serious: No
  Sender: FDA-Public Use
  Company Number: US-BAYER-200716470NA

PATIENT
  Age: 32 Year
  Sex: Female
  Weight: 109 kg

DRUGS (4)
  1. YAZ [Suspect]
     Indication: CONTRACEPTION
     Route: 048
     Dates: start: 20070301
  2. SINGULAIR [Concomitant]
     Indication: ASTHMA
  3. PROVIGIL [Concomitant]
     Indication: NARCOLEPSY
     Dates: start: 20071101
  4. CYMBALTA [Concomitant]
     Indication: DEPRESSION
     Dates: start: 20061201

REACTIONS (1)
  - AMENORRHOEA [None]
